FAERS Safety Report 21458538 (Version 1)
Quarter: 2022Q4

REPORT INFORMATION
  Report Type: Spontaneous
  Country: JP (occurrence: JP)
  Receive Date: 20221014
  Receipt Date: 20221014
  Transmission Date: 20230113
  Serious: Yes (Other)
  Sender: FDA-Public Use
  Company Number: JP-CELGENE-JPN-20210900398

PATIENT
  Age: 65 Year
  Sex: Male

DRUGS (8)
  1. ISTODAX [Suspect]
     Active Substance: ROMIDEPSIN
     Indication: T-cell lymphoma
     Route: 041
  2. VALTREX [Suspect]
     Active Substance: VALACYCLOVIR HYDROCHLORIDE
     Indication: T-cell lymphoma
     Route: 048
     Dates: start: 20200804
  3. ITRACONAZOLE [Suspect]
     Active Substance: ITRACONAZOLE
     Indication: T-cell lymphoma
     Route: 048
     Dates: start: 20200801
  4. LANSOPRAZOLE [Suspect]
     Active Substance: LANSOPRAZOLE
     Indication: T-cell lymphoma
     Route: 048
     Dates: start: 20200630
  5. LEVOFLOXACIN [Suspect]
     Active Substance: LEVOFLOXACIN
     Indication: T-cell lymphoma
     Route: 048
     Dates: start: 20200616
  6. GRANISETRON [Suspect]
     Active Substance: GRANISETRON
     Indication: T-cell lymphoma
     Route: 041
     Dates: start: 20200929
  7. DEXAMETHASONE SODIUM PHOSPHATE [Suspect]
     Active Substance: DEXAMETHASONE SODIUM PHOSPHATE
     Indication: T-cell lymphoma
     Route: 041
     Dates: start: 20200929
  8. URSODIOL [Suspect]
     Active Substance: URSODIOL
     Indication: T-cell lymphoma
     Route: 048
     Dates: start: 20201007, end: 20201210

REACTIONS (1)
  - Liver disorder [Recovering/Resolving]

NARRATIVE: CASE EVENT DATE: 20200930
